FAERS Safety Report 24416357 (Version 1)
Quarter: 2024Q4

REPORT INFORMATION
  Report Type: Spontaneous
  Country: GB (occurrence: GB)
  Receive Date: 20241009
  Receipt Date: 20241009
  Transmission Date: 20250115
  Serious: Yes (Disabling, Other)
  Sender: PFIZER
  Company Number: GB-MHRA-WEBRADR-202410060110549830-MWBSN

PATIENT
  Age: 43 Year
  Sex: Female
  Weight: 61 kg

DRUGS (1)
  1. CLINDAMYCIN HYDROCHLORIDE [Suspect]
     Active Substance: CLINDAMYCIN HYDROCHLORIDE
     Indication: Tooth infection
     Dosage: 150 MG
     Route: 048
     Dates: start: 20241004, end: 20241006

REACTIONS (1)
  - Sensory loss [Not Recovered/Not Resolved]

NARRATIVE: CASE EVENT DATE: 20241006
